FAERS Safety Report 9379160 (Version 3)
Quarter: 2013Q3

REPORT INFORMATION
  Report Type: Spontaneous
  Country: IT (occurrence: IT)
  Receive Date: 20130702
  Receipt Date: 20130911
  Transmission Date: 20140515
  Serious: Yes (Other)
  Sender: FDA-Public Use
  Company Number: IT-JNJFOC-20130616437

PATIENT
  Age: 51 Year
  Sex: Female

DRUGS (2)
  1. HALDOL [Suspect]
     Indication: DEPRESSION
     Route: 048
     Dates: start: 20130622, end: 20130622
  2. BROMAZEPAM [Suspect]
     Indication: DEPRESSION
     Route: 048
     Dates: start: 20130622, end: 20130622

REACTIONS (4)
  - Self injurious behaviour [Unknown]
  - Intentional overdose [Unknown]
  - Sopor [Recovered/Resolved]
  - Drug abuse [Recovered/Resolved]
